FAERS Safety Report 10084630 (Version 1)
Quarter: 2014Q2

REPORT INFORMATION
  Report Type: Spontaneous
  Country: GB (occurrence: GB)
  Receive Date: 20140417
  Receipt Date: 20140417
  Transmission Date: 20141212
  Serious: Yes (Hospitalization)
  Sender: FDA-Public Use
  Company Number: GB-TEVA-475235ISR

PATIENT
  Age: 63 Year
  Sex: Male
  Weight: 95.4 kg

DRUGS (13)
  1. RAMIPRIL [Suspect]
     Indication: HYPERTENSION
     Route: 048
     Dates: start: 20140327, end: 20140328
  2. ASPIRIN [Concomitant]
  3. CEFUROXIME [Concomitant]
  4. CLOPIDOGREL [Concomitant]
  5. DALTEPARIN [Concomitant]
  6. GENTAMICIN [Concomitant]
  7. LANSOPRAZOLE [Concomitant]
  8. METOCLOPRAMIDE [Concomitant]
  9. MORPHINE [Concomitant]
  10. ONDANSETRON [Concomitant]
  11. PARACETAMOL [Concomitant]
  12. PREGABALIN [Concomitant]
  13. ACIDEX [Concomitant]

REACTIONS (3)
  - Oesophagitis haemorrhagic [Recovering/Resolving]
  - Incorrect dose administered [Unknown]
  - Renal failure acute [Unknown]
